FAERS Safety Report 4751091-X (Version None)
Quarter: 2005Q3

REPORT INFORMATION
  Report Type: 
  Country: None (occurrence: None)
  Receive Date: 20050822
  Receipt Date: 20050804
  Transmission Date: 20060218
  Serious: Yes (Other)
  Sender: FDA-Public Use
  Company Number: A-US2005-09780

PATIENT
  Age: 39 Year
  Sex: Female

DRUGS (2)
  1. TRACLEER [Suspect]
     Indication: PULMONARY HYPERTENSION
     Dosage: SEE IMAGE
     Route: 048
  2. FLOLAN [Suspect]

REACTIONS (7)
  - ANTI-NEUTROPHIL CYTOPLASMIC ANTIBODY POSITIVE VASCULITIS [None]
  - ASCITES [None]
  - COR PULMONALE [None]
  - LEUKOCYTOCLASTIC VASCULITIS [None]
  - PITTING OEDEMA [None]
  - PULMONARY HAEMORRHAGE [None]
  - RASH MACULO-PAPULAR [None]
